FAERS Safety Report 4338994-5 (Version None)
Quarter: 2004Q1

REPORT INFORMATION
  Report Type: 
  Country: None (occurrence: None)
  Receive Date: 20040329
  Receipt Date: 20040204
  Transmission Date: 20041129
  Serious: No
  Sender: FDA-Public Use
  Company Number: USA040258484

PATIENT
  Age: 17 Year
  Sex: Female

DRUGS (4)
  1. STRATTERA [Suspect]
     Indication: ATTENTION DEFICIT/HYPERACTIVITY DISORDER
     Route: 048
  2. ZOLOFT [Concomitant]
  3. CLONIDINE [Concomitant]
  4. RISPERIDONE [Concomitant]

REACTIONS (1)
  - TIC [None]
